FAERS Safety Report 8579145 (Version 11)
Quarter: 2014Q3

REPORT INFORMATION
  Report Type: Spontaneous
  Country: US (occurrence: US)
  Receive Date: 20120524
  Receipt Date: 20140805
  Transmission Date: 20150326
  Serious: Yes (Hospitalization, Disabling, Other)
  Sender: FDA-Public Use
  Company Number: US-009507513-1205USA02888

PATIENT
  Sex: Female
  Weight: 46.26 kg

DRUGS (3)
  1. FOSAMAX [Suspect]
     Active Substance: ALENDRONATE SODIUM
     Dosage: 70 MG, UNK
     Route: 048
     Dates: start: 20080227, end: 20100310
  2. ALENDRONATE SODIUM. [Suspect]
     Active Substance: ALENDRONATE SODIUM
     Indication: OSTEOPENIA
     Dosage: 70 MG, UNK
     Route: 048
     Dates: start: 20080227, end: 20100407
  3. FOSAMAX [Suspect]
     Active Substance: ALENDRONATE SODIUM
     Indication: OSTEOPENIA
     Dosage: 70 MG, UNK
     Route: 048
     Dates: start: 20010726, end: 20080222

REACTIONS (24)
  - Stress fracture [Unknown]
  - Endometriosis [Unknown]
  - Medical device removal [Unknown]
  - Joint effusion [Unknown]
  - Cartilage injury [Unknown]
  - Osteoarthritis [Unknown]
  - Tendon injury [Unknown]
  - Humerus fracture [Unknown]
  - Low turnover osteopathy [Unknown]
  - Bone disorder [Unknown]
  - Bone disorder [Unknown]
  - Device extrusion [Unknown]
  - Bone marrow oedema [Unknown]
  - Neck pain [Recovered/Resolved]
  - Intramedullary rod insertion [Unknown]
  - Femur fracture [Not Recovered/Not Resolved]
  - Blood cholesterol increased [Unknown]
  - Fall [Unknown]
  - Atrophy [Unknown]
  - Tooth disorder [Unknown]
  - Osteoporosis [Unknown]
  - Joint surgery [Unknown]
  - Rib fracture [Unknown]
  - Bone cyst [Unknown]

NARRATIVE: CASE EVENT DATE: 2004
